FAERS Safety Report 21101267 (Version 2)
Quarter: 2022Q3

REPORT INFORMATION
  Report Type: Spontaneous
  Country: US (occurrence: None)
  Receive Date: 20220719
  Receipt Date: 20220726
  Transmission Date: 20221026
  Serious: Yes (Other)
  Sender: FDA-Public Use
  Company Number: 2022A253499

PATIENT

DRUGS (1)
  1. LOKELMA [Suspect]
     Active Substance: SODIUM ZIRCONIUM CYCLOSILICATE
     Indication: Hyperkalaemia
     Dosage: 10.0G UNKNOWN
     Route: 048

REACTIONS (2)
  - Deafness [Unknown]
  - Ear pain [Unknown]

NARRATIVE: CASE EVENT DATE: 20220605
